FAERS Safety Report 5060189-0 (Version None)
Quarter: 2006Q3

REPORT INFORMATION
  Report Type: 
  Country: None (occurrence: None)
  Receive Date: 20060724
  Receipt Date: 20060328
  Transmission Date: 20061208
  Serious: Yes (Life-Threatening)
  Sender: FDA-Public Use
  Company Number: US-ABBOTT-06P-163-0329169-00

PATIENT
  Sex: Female
  Weight: 56.75 kg

DRUGS (6)
  1. HUMIRA [Suspect]
     Indication: RHEUMATOID ARTHRITIS
     Route: 058
     Dates: start: 20040101, end: 20050101
  2. HUMIRA [Suspect]
     Route: 058
     Dates: start: 20050901, end: 20051101
  3. FENTANYL TRANSDERMAL SYSTEM [Concomitant]
     Indication: PAIN
     Route: 062
     Dates: start: 20050101, end: 20050501
  4. PREDNISONE [Concomitant]
     Indication: ARTHRITIS
     Dosage: 5 MG QD AND 10 MG QOD
     Route: 048
     Dates: start: 20050101
  5. MORPHINE [Concomitant]
     Indication: PAIN
     Route: 048
     Dates: start: 20050501
  6. IRBESARTAN [Concomitant]
     Indication: DRUG USE FOR UNKNOWN INDICATION

REACTIONS (4)
  - LUNG CANCER METASTATIC [None]
  - METASTASES TO BONE [None]
  - METASTASES TO CENTRAL NERVOUS SYSTEM [None]
  - SPINAL COLUMN STENOSIS [None]
